FAERS Safety Report 7001914-9 (Version None)
Quarter: 2010Q3

REPORT INFORMATION
  Report Type: 
  Country: None (occurrence: None)
  Receive Date: 20100920
  Receipt Date: 20100910
  Transmission Date: 20110219
  Serious: Yes (Hospitalization)
  Sender: FDA-Public Use
  Company Number: A0796467A

PATIENT
  Age: 59 Year
  Sex: Female
  Weight: 90.9 kg

DRUGS (10)
  1. AVANDIA [Suspect]
     Indication: DIABETES MELLITUS
     Dosage: 8MG PER DAY
     Route: 048
     Dates: start: 20000101, end: 20070701
  2. INSULIN [Concomitant]
  3. COZAAR [Concomitant]
  4. QUINAPRIL [Concomitant]
  5. PRAZOSIN HCL [Concomitant]
  6. CLONIDINE [Concomitant]
  7. PROTONIX [Concomitant]
  8. EFFEXOR [Concomitant]
  9. LAMISIL [Concomitant]
  10. PREMPRO [Concomitant]

REACTIONS (32)
  - ABDOMINAL PAIN [None]
  - ANGINA PECTORIS [None]
  - AORTIC VALVE INCOMPETENCE [None]
  - AORTIC VALVE STENOSIS [None]
  - ARTERIOSCLEROSIS CORONARY ARTERY [None]
  - BRONCHOPNEUMONIA [None]
  - CARDIAC DISORDER [None]
  - CARDIAC FAILURE CONGESTIVE [None]
  - CARDIOMEGALY [None]
  - CARDIOVASCULAR DISORDER [None]
  - CONGESTIVE CARDIOMYOPATHY [None]
  - CORONARY ARTERY DISEASE [None]
  - CORONARY ARTERY OCCLUSION [None]
  - ECONOMIC PROBLEM [None]
  - FATIGUE [None]
  - GASTROOESOPHAGEAL REFLUX DISEASE [None]
  - INJURY [None]
  - INSOMNIA [None]
  - ISCHAEMIC CARDIOMYOPATHY [None]
  - LUNG DISORDER [None]
  - LUNG NEOPLASM [None]
  - MITRAL VALVE INCOMPETENCE [None]
  - NAUSEA [None]
  - PERICARDIAL EFFUSION [None]
  - PLEURAL EFFUSION [None]
  - POLLAKIURIA [None]
  - PULMONARY HYPERTENSION [None]
  - QUALITY OF LIFE DECREASED [None]
  - RENAL FAILURE [None]
  - TRICUSPID VALVE INCOMPETENCE [None]
  - VENTRICULAR DYSKINESIA [None]
  - VENTRICULAR HYPOKINESIA [None]
